FAERS Safety Report 4325320-0 (Version None)
Quarter: 2004Q1

REPORT INFORMATION
  Report Type: 
  Country: None (occurrence: None)
  Receive Date: 20040323
  Receipt Date: 20040310
  Transmission Date: 20041129
  Serious: Yes (Hospitalization)
  Sender: FDA-Public Use
  Company Number: CIP04000547

PATIENT
  Age: 68 Year
  Sex: Female

DRUGS (5)
  1. ACTONEL [Suspect]
     Indication: OSTEOPOROSIS
     Dosage: 2.5 MG DAILY, ORAL
     Route: 048
     Dates: start: 20030225, end: 20030723
  2. VOLTAREN [Suspect]
     Indication: OSTEOPOROSIS
     Dosage: 75 MG, ORAL
     Route: 048
     Dates: start: 20030225, end: 20030709
  3. MYONAL (EPERISONE HYDROCHLORIDE) [Suspect]
     Indication: OSTEOPOROSIS
     Dosage: 100 MG , ORAL
     Route: 048
     Dates: start: 20030225, end: 20030709
  4. MUCOSTA (REBAMIPIDE) [Suspect]
     Indication: OSTEOPOROSIS
     Dosage: 200 MG , ORAL
     Route: 048
     Dates: start: 20030225, end: 20030709
  5. INSIDE (RANITIDINE HYDROCHLORIDE) [Concomitant]

REACTIONS (3)
  - BLOOD PRESSURE INADEQUATELY CONTROLLED [None]
  - CEREBROVASCULAR DISORDER [None]
  - SPEECH DISORDER [None]
